FAERS Safety Report 10067245 (Version 1)
Quarter: 2014Q2

REPORT INFORMATION
  Report Type: Spontaneous
  Country: US (occurrence: None)
  Receive Date: 20140408
  Receipt Date: 20140408
  Transmission Date: 20141212
  Serious: Yes (Other)
  Sender: FDA-Public Use
  Company Number: None

PATIENT
  Age: 47 Year
  Sex: Female

DRUGS (1)
  1. OMEPRAZOLE [Suspect]
     Indication: GASTROOESOPHAGEAL REFLUX DISEASE
     Dosage: 40 MG  1 PILL  ONCE @ BEDTIME BY MOUTH
     Route: 048
     Dates: start: 20140220, end: 20140311

REACTIONS (2)
  - Gastrooesophageal reflux disease [None]
  - Abdominal pain upper [None]
